FAERS Safety Report 6367883-X (Version None)
Quarter: 2009Q3

REPORT INFORMATION
  Report Type: 
  Country: None (occurrence: None)
  Receive Date: 20090922
  Receipt Date: 20090911
  Transmission Date: 20100115
  Serious: Yes (Hospitalization)
  Sender: FDA-Public Use
  Company Number: US-BIOGENIDEC-2009BI027434

PATIENT
  Age: 65 Year
  Sex: Female

DRUGS (1)
  1. AVONEX [Suspect]
     Indication: MULTIPLE SCLEROSIS
     Route: 030
     Dates: start: 20090512, end: 20090101

REACTIONS (6)
  - CEREBRAL HAEMORRHAGE [None]
  - DEPRESSED MOOD [None]
  - FALL [None]
  - FEELING ABNORMAL [None]
  - HEAD INJURY [None]
  - MUSCULAR WEAKNESS [None]
